FAERS Safety Report 23041300 (Version 1)
Quarter: 2023Q4

REPORT INFORMATION
  Report Type: Spontaneous
  Country: ES (occurrence: ES)
  Receive Date: 20231007
  Receipt Date: 20231007
  Transmission Date: 20240110
  Serious: Yes (Other)
  Sender: FDA-Public Use
  Company Number: ES-UCBSA-2023026053

PATIENT
  Age: 22 Year
  Sex: Female

DRUGS (2)
  1. CARBAMAZEPINE [Suspect]
     Active Substance: CARBAMAZEPINE
     Indication: Product used for unknown indication
     Dosage: 800 MG, QD, (400 MILLIGRAM, 2X/DAY (BID))
     Route: 065
  2. BRIVIACT [Suspect]
     Active Substance: BRIVARACETAM
     Indication: Product used for unknown indication
     Dosage: 200 MG, QD, (100 MILLIGRAM, 2X/DAY (BID))
     Route: 065

REACTIONS (2)
  - Epilepsy [Unknown]
  - Maternal exposure during pregnancy [Unknown]
